FAERS Safety Report 7122286-5 (Version None)
Quarter: 2010Q4

REPORT INFORMATION
  Report Type: 
  Country: None (occurrence: None)
  Receive Date: 20101124
  Receipt Date: 20101123
  Transmission Date: 20110411
  Serious: Yes (Death, Hospitalization, Other)
  Sender: FDA-Public Use
  Company Number: BR-ABBOTT-10P-020-0685942-00

PATIENT
  Sex: Male
  Weight: 80 kg

DRUGS (3)
  1. HUMIRA [Suspect]
     Indication: RHEUMATOID ARTHRITIS
     Route: 058
     Dates: start: 20100403, end: 20101001
  2. UNKNOWN DRUG [Concomitant]
     Indication: HYPERTENSION
  3. CAPTOPRIL [Concomitant]
     Indication: BLOOD PRESSURE

REACTIONS (9)
  - BRONCHOPNEUMONIA [None]
  - CARDIAC ARREST [None]
  - DEPRESSION [None]
  - DIABETES MELLITUS [None]
  - DIZZINESS [None]
  - HYPERTENSION [None]
  - PNEUMONIA BACTERIAL [None]
  - PYREXIA [None]
  - WEIGHT DECREASED [None]
